FAERS Safety Report 11787561 (Version 1)
Quarter: 2015Q4

REPORT INFORMATION
  Report Type: Spontaneous
  Country: DE (occurrence: DE)
  Receive Date: 20151130
  Receipt Date: 20151130
  Transmission Date: 20160305
  Serious: Yes (Other)
  Sender: FDA-Public Use
  Company Number: DE-BAYER-2015-474812

PATIENT
  Age: 85 Year
  Sex: Female

DRUGS (7)
  1. ACETYLSALICYLIC ACID (} 100 MG) [Suspect]
     Active Substance: ASPIRIN
     Indication: TRANSCATHETER AORTIC VALVE IMPLANTATION
     Dosage: PERI-INTERVENTIONAL: 400 MG
  2. ACETYLSALICYLIC ACID (} 100 MG) [Suspect]
     Active Substance: ASPIRIN
     Indication: ANTIPLATELET THERAPY
     Dosage: POST IMPLANTATION: 100 MG
  3. CLOPIDOGREL [Concomitant]
     Active Substance: CLOPIDOGREL BISULFATE
     Indication: ANTIPLATELET THERAPY
     Dosage: POST IMPLANTATION: 75 MG
  4. CLOPIDOGREL [Concomitant]
     Active Substance: CLOPIDOGREL BISULFATE
     Indication: ANTICOAGULANT THERAPY
     Dosage: UNK
  5. HEPARIN [Concomitant]
     Active Substance: HEPARIN SODIUM
     Indication: TRANSCATHETER AORTIC VALVE IMPLANTATION
     Dosage: PERI-INTERVENTIONALLY: 5000 IU
  6. HEPARIN [Concomitant]
     Active Substance: HEPARIN SODIUM
     Indication: TRANSCATHETER AORTIC VALVE IMPLANTATION
     Dosage: 7500 IU, BID, POST IMPLANTATION
  7. CLOPIDOGREL [Concomitant]
     Active Substance: CLOPIDOGREL BISULFATE
     Indication: TRANSCATHETER AORTIC VALVE IMPLANTATION
     Dosage: PERI-INTERVENTIONALLY: 600 MG

REACTIONS (1)
  - Cardiac valve replacement complication [None]
